FAERS Safety Report 14674701 (Version 1)
Quarter: 2018Q1

REPORT INFORMATION
  Report Type: Spontaneous
  Country: CA (occurrence: CA)
  Receive Date: 20180323
  Receipt Date: 20180323
  Transmission Date: 20180509
  Serious: Yes (Other)
  Sender: FDA-Public Use
  Company Number: CA-BAYER-2018-051802

PATIENT
  Age: 39 Year
  Sex: Female
  Weight: 56.69 kg

DRUGS (4)
  1. MIRENA [Suspect]
     Active Substance: LEVONORGESTREL
  2. ATIVAN [Concomitant]
     Active Substance: LORAZEPAM
  3. MIRENA [Suspect]
     Active Substance: LEVONORGESTREL
     Dosage: 20 MCG/24HR, CONT
     Route: 015
  4. AMLODIPINE [Concomitant]
     Active Substance: AMLODIPINE BESYLATE

REACTIONS (13)
  - Anxiety [Unknown]
  - Dry skin [Unknown]
  - Nervousness [Unknown]
  - Scab [Unknown]
  - Abdominal pain [Unknown]
  - Headache [Unknown]
  - Insomnia [Unknown]
  - Depression [Unknown]
  - Panic attack [Unknown]
  - Fatigue [Unknown]
  - Hypertension [Unknown]
  - Restlessness [Unknown]
  - Dizziness [Unknown]
